FAERS Safety Report 10075503 (Version 1)
Quarter: 2014Q2

REPORT INFORMATION
  Report Type: Spontaneous
  Country: BR (occurrence: BR)
  Receive Date: 20140414
  Receipt Date: 20140414
  Transmission Date: 20141212
  Serious: Yes (Other)
  Sender: FDA-Public Use
  Company Number: BR-ROCHE-1375955

PATIENT
  Sex: Female
  Weight: 61 kg

DRUGS (11)
  1. VALIUM [Suspect]
     Indication: PANIC DISORDER
     Route: 042
     Dates: start: 2005
  2. BROMAZEPAM [Suspect]
     Indication: ANXIETY
     Route: 065
     Dates: start: 2005
  3. ATACAND [Suspect]
     Indication: HYPERTENSION
     Dosage: 2 TABLETS OF 8 MG, JAN/2012: 1.5 TABLET DAILY
     Route: 048
     Dates: start: 20111225
  4. ATACAND [Suspect]
     Route: 065
     Dates: start: 2009, end: 20111224
  5. ATACAND [Suspect]
     Route: 065
     Dates: start: 2009, end: 2009
  6. ATACAND [Suspect]
     Dosage: 1.5 TABLET DAILY
     Route: 048
     Dates: start: 201201
  7. ATACAND [Suspect]
     Dosage: 2 TABLETS DAILY
     Route: 048
  8. ATACAND [Suspect]
     Dosage: 16/12.55 MG, ATACAND HCT
     Route: 048
     Dates: start: 2009, end: 2009
  9. HYDROCHLOROTHIAZIDE [Suspect]
     Indication: HYPERTENSION
     Dosage: 16/12.55 MG
     Route: 048
     Dates: start: 2009, end: 2009
  10. PURAN T4 [Suspect]
     Indication: THYROID DISORDER
     Route: 048
     Dates: start: 2010
  11. PURAN T4 [Suspect]
     Route: 065

REACTIONS (6)
  - Hypertension [Recovered/Resolved]
  - Palpitations [Recovered/Resolved]
  - Blood pressure decreased [Recovered/Resolved]
  - Confusional state [Recovered/Resolved]
  - Anxiety [Not Recovered/Not Resolved]
  - Thyroid function test abnormal [Recovered/Resolved]
